FAERS Safety Report 10034771 (Version 1)
Quarter: 2014Q1

REPORT INFORMATION
  Report Type: Spontaneous
  Country: US (occurrence: None)
  Receive Date: 20140306
  Receipt Date: 20140306
  Transmission Date: 20141002
  Serious: Yes (Hospitalization)
  Sender: FDA-Public Use
  Company Number: 163-21880-12123481

PATIENT
  Age: 70 Year
  Sex: Male

DRUGS (9)
  1. REVLIMID [Suspect]
     Indication: PLASMA CELL MYELOMA
     Dosage: 25 MG, 21 IN 21 D, PO
     Route: 048
     Dates: start: 20121204
  2. CINNAMON (CINNAMOMUM VERUM) (UNKNOWN) [Concomitant]
  3. CIPRO (CIPROFLOXACIN) [Concomitant]
  4. COUMADIN (WAFARIN SODIUM) [Concomitant]
  5. HEPARIN SODIUM (HEPARIN SODIUM) [Concomitant]
  6. IBUPROFEN (IBUPROFEN) [Concomitant]
  7. LOVENOX (HEPARIN-FRACTION, SODIUM SALT) [Concomitant]
  8. OXYCODONE HCL (OXYCODONE HYDROCHLORIDE) [Concomitant]
  9. TAMSULOSINHCL (TAMSULOSIN HYDROCHLORIDE) [Concomitant]

REACTIONS (1)
  - Deep vein thrombosis [None]
